FAERS Safety Report 9401194 (Version 4)
Quarter: 2013Q4

REPORT INFORMATION
  Report Type: Spontaneous
  Country: FR (occurrence: FR)
  Receive Date: 20130715
  Receipt Date: 20131021
  Transmission Date: 20140711
  Serious: Yes (Hospitalization)
  Sender: FDA-Public Use
  Company Number: FR-VERTEX PHARMACEUTICALS INC-2013-007954

PATIENT
  Age: 54 Year
  Sex: Male

DRUGS (3)
  1. INCIVO [Suspect]
     Indication: HEPATITIS C
     Dosage: 3 DF, BID
     Route: 048
     Dates: start: 20130415, end: 20130630
  2. COPEGUS [Suspect]
     Indication: HEPATITIS C
     Dosage: DOSAGE FORM: UNSPECIFIED, 1200 (UNITS AND INTERVAL UNSPECIFIED)
     Route: 065
     Dates: start: 20130415, end: 20130630
  3. PEGASYS [Suspect]
     Indication: HEPATITIS C
     Dosage: DOSAGE FORM: UNSPECIFIED, 180 (UNITS AND INTERVAL UNSPECIFIED)
     Route: 065
     Dates: start: 20130415, end: 20130630

REACTIONS (10)
  - Eosinophilia [Recovered/Resolved]
  - Mucosal erosion [Recovered/Resolved]
  - Skin lesion [Recovered/Resolved]
  - Pyrexia [Recovered/Resolved]
  - Acne [Unknown]
  - Erythema multiforme [Recovered/Resolved]
  - Rash [Recovered/Resolved]
  - Toxic skin eruption [Recovered/Resolved]
  - Anaemia [Unknown]
  - Prurigo [Unknown]
